FAERS Safety Report 5363924-7 (Version None)
Quarter: 2007Q2

REPORT INFORMATION
  Report Type: 
  Country: None (occurrence: None)
  Receive Date: 20070620
  Receipt Date: 20070611
  Transmission Date: 20071010
  Serious: No
  Sender: FDA-Public Use
  Company Number: US-BAXTER-2007BH005196

PATIENT
  Age: 45 Year
  Sex: Female

DRUGS (1)
  1. KIOVIG [Suspect]
     Indication: MIXED CONNECTIVE TISSUE DISEASE
     Dosage: DOSE UNIT:UNKNOWN
     Route: 042
     Dates: start: 20070602, end: 20070602

REACTIONS (14)
  - ABDOMINAL PAIN UPPER [None]
  - CHOLECYSTITIS [None]
  - DEHYDRATION [None]
  - FATIGUE [None]
  - FEELING ABNORMAL [None]
  - FOOD AVERSION [None]
  - INFLUENZA LIKE ILLNESS [None]
  - MIGRAINE [None]
  - NAUSEA [None]
  - NEPHROLITHIASIS [None]
  - SOMNOLENCE [None]
  - SWELLING [None]
  - URINARY TRACT INFECTION [None]
  - VOMITING [None]
